FAERS Safety Report 24767265 (Version 1)
Quarter: 2024Q4

REPORT INFORMATION
  Report Type: Spontaneous
  Country: US (occurrence: US)
  Receive Date: 20241223
  Receipt Date: 20241223
  Transmission Date: 20250115
  Serious: No
  Sender: FRESENIUS KABI
  Company Number: US-FreseniusKabi-FK202418727

PATIENT

DRUGS (1)
  1. OMEGAVEN [Suspect]
     Active Substance: FISH OIL
     Indication: Product used for unknown indication
     Dosage: FORM OF ADMINISTRATION: INJECTABLE EMULSION

REACTIONS (2)
  - Fatty acid deficiency [Unknown]
  - Hypertriglyceridaemia [Unknown]
